FAERS Safety Report 7505352-1 (Version None)
Quarter: 2011Q2

REPORT INFORMATION
  Report Type: 
  Country: None (occurrence: None)
  Receive Date: 20110526
  Receipt Date: 20110520
  Transmission Date: 20111010
  Serious: Yes (Other)
  Sender: FDA-Public Use
  Company Number: US-AMGEN-USASP2011026596

PATIENT
  Age: 47 Year
  Sex: Male

DRUGS (3)
  1. NPLATE [Suspect]
     Indication: IDIOPATHIC THROMBOCYTOPENIC PURPURA
     Dates: start: 20110101
  2. FERROUS SULFATE TAB [Concomitant]
  3. NEUPOGEN [Suspect]

REACTIONS (5)
  - PANCYTOPENIA [None]
  - BIOPSY BONE MARROW ABNORMAL [None]
  - IRON DEFICIENCY [None]
  - OESOPHAGEAL INFECTION [None]
  - ANTI-PLATELET ANTIBODY POSITIVE [None]
